FAERS Safety Report 26027210 (Version 1)
Quarter: 2025Q4

REPORT INFORMATION
  Report Type: Spontaneous
  Country: US (occurrence: US)
  Receive Date: 20251111
  Receipt Date: 20251111
  Transmission Date: 20260117
  Serious: No
  Sender: 3M
  Company Number: US-3MMEDICAL-2025-US-050350

PATIENT

DRUGS (1)
  1. SOLUPREP [Suspect]
     Active Substance: CHLORHEXIDINE GLUCONATE\ISOPROPYL ALCOHOL
     Indication: Preoperative care
     Dosage: 26 ML SINGLE USE
     Route: 061

REACTIONS (2)
  - Skin laceration [Unknown]
  - Erythema [Unknown]

NARRATIVE: CASE EVENT DATE: 20251017
